FAERS Safety Report 8127060-9 (Version None)
Quarter: 2012Q1

REPORT INFORMATION
  Report Type: 
  Country: None (occurrence: None)
  Receive Date: 20120210
  Receipt Date: 20120131
  Transmission Date: 20120608
  Serious: Yes (Hospitalization)
  Sender: FDA-Public Use
  Company Number: US-JNJFOC-20120200428

PATIENT
  Sex: Female
  Weight: 62.14 kg

DRUGS (17)
  1. AZULFIDINE [Concomitant]
     Route: 065
  2. BENTYL [Concomitant]
     Route: 065
  3. ONDANSETRON HCL [Concomitant]
     Route: 065
  4. PRED FORTE [Concomitant]
     Route: 047
  5. IMODIUM [Concomitant]
     Route: 065
  6. NORCO [Concomitant]
     Route: 065
  7. LOPRESSOR [Concomitant]
     Route: 065
  8. FENTANYL CITRATE [Concomitant]
     Route: 065
  9. NEXIUM [Concomitant]
     Route: 065
  10. REMICADE [Suspect]
     Indication: CROHN'S DISEASE
     Route: 042
     Dates: start: 20110101
  11. COUMADIN [Concomitant]
     Route: 065
  12. HYDROCHLOROTHIAZIDE [Concomitant]
     Route: 065
  13. KEPPRA [Concomitant]
     Route: 065
  14. SYNTHROID [Concomitant]
     Route: 065
  15. BUDESONIDE [Concomitant]
     Route: 065
  16. ALBUTEROL [Concomitant]
     Route: 065
  17. AMBIEN [Concomitant]
     Route: 065

REACTIONS (1)
  - TUBERCULOSIS [None]
